FAERS Safety Report 10213862 (Version 1)
Quarter: 2014Q2

REPORT INFORMATION
  Report Type: Spontaneous
  Country: US (occurrence: None)
  Receive Date: 20140602
  Receipt Date: 20140602
  Transmission Date: 20141212
  Serious: Yes (Other)
  Sender: FDA-Public Use
  Company Number: None

PATIENT
  Age: 63 Year
  Sex: Female
  Weight: 68.04 kg

DRUGS (2)
  1. TAXOTERE [Suspect]
     Indication: BREAST CANCER
     Dosage: EVERY 3 WEEKS X 4 INTO A VEIN
     Route: 042
     Dates: start: 20100723, end: 20100923
  2. TAXOTERE [Suspect]
     Indication: CHEMOTHERAPY
     Dosage: EVERY 3 WEEKS X 4 INTO A VEIN
     Route: 042
     Dates: start: 20100723, end: 20100923

REACTIONS (1)
  - Alopecia [None]
